FAERS Safety Report 9351074 (Version 4)
Quarter: 2013Q3

REPORT INFORMATION
  Report Type: Spontaneous
  Country: US (occurrence: US)
  Receive Date: 20130617
  Receipt Date: 20130717
  Transmission Date: 20140515
  Serious: No
  Sender: FDA-Public Use
  Company Number: US-VERTEX PHARMACEUTICALS INC-2013-007121

PATIENT
  Age: 47 Year
  Sex: Male
  Weight: 88 kg

DRUGS (5)
  1. INCIVEK [Suspect]
     Indication: HEPATITIS C
     Dosage: 750 MG, TID
     Route: 048
     Dates: start: 20130607
  2. RIBAVIRIN [Suspect]
     Indication: HEPATITIS C
     Dosage: 600 MG, BID
     Route: 048
     Dates: start: 20130607
  3. PEGASYS [Suspect]
     Indication: HEPATITIS C
     Dosage: 180 ?G, QW
     Route: 058
     Dates: start: 20130607
  4. TEMAZEPAM [Concomitant]
     Indication: ANXIETY
     Dosage: UNK, PRN
     Route: 048
  5. DIAZEPAM [Concomitant]
     Indication: ANXIETY
     Dosage: UNK, PRN
     Route: 048

REACTIONS (15)
  - White blood cell count decreased [Not Recovered/Not Resolved]
  - Neutrophil count decreased [Recovered/Resolved]
  - Abdominal pain [Not Recovered/Not Resolved]
  - Chills [Recovered/Resolved]
  - Anger [Not Recovered/Not Resolved]
  - Irritability [Not Recovered/Not Resolved]
  - Acne [Not Recovered/Not Resolved]
  - Paraesthesia [Recovered/Resolved]
  - Fatigue [Not Recovered/Not Resolved]
  - Haematochezia [Not Recovered/Not Resolved]
  - Diarrhoea [Not Recovered/Not Resolved]
  - Anorectal discomfort [Recovered/Resolved]
  - Pruritus generalised [Not Recovered/Not Resolved]
  - Anal pruritus [Recovered/Resolved]
  - Nausea [Recovered/Resolved]
